FAERS Safety Report 15034583 (Version 1)
Quarter: 2018Q2

REPORT INFORMATION
  Report Type: Spontaneous
  Country: SE (occurrence: SE)
  Receive Date: 20180620
  Receipt Date: 20180620
  Transmission Date: 20180711
  Serious: Yes (Other)
  Sender: FDA-Public Use
  Company Number: SE-TEVA-2018-SE-909927

PATIENT
  Age: 80 Year
  Sex: Female

DRUGS (12)
  1. ONDANSETRON [Concomitant]
     Active Substance: ONDANSETRON
     Route: 065
  2. ALVEDON [Concomitant]
     Active Substance: ACETAMINOPHEN
     Route: 065
  3. ATORVASTATIN [Concomitant]
     Active Substance: ATORVASTATIN
     Route: 065
  4. ENALAPRIL [Concomitant]
     Active Substance: ENALAPRIL
     Route: 065
  5. VALACICLOVIR [Suspect]
     Active Substance: VALACYCLOVIR HYDROCHLORIDE
     Indication: HERPES ZOSTER
     Dosage: INTENDED 3000 MG 2018-04-02, DECREASE TO 1000 MG UNCLEAR DATE
     Route: 048
     Dates: start: 20180402, end: 20180406
  6. LANTUS [Concomitant]
     Active Substance: INSULIN GLARGINE
     Route: 065
  7. DUPHALAC [Concomitant]
     Active Substance: LACTULOSE
     Route: 065
  8. OMEPRAZOL [Concomitant]
     Active Substance: OMEPRAZOLE
     Route: 065
  9. ZOPIKLON [Concomitant]
     Active Substance: ZOPICLONE
     Route: 065
  10. TROMBYL [Concomitant]
     Active Substance: ASPIRIN
     Route: 065
  11. TAVEGYL [Concomitant]
     Active Substance: CLEMASTINE FUMARATE
     Route: 065
  12. XYLOCAINE [Concomitant]
     Active Substance: LIDOCAINE HYDROCHLORIDE
     Route: 065

REACTIONS (6)
  - Toxic encephalopathy [Unknown]
  - Drug prescribing error [Unknown]
  - Disorientation [Unknown]
  - Confusional state [Unknown]
  - Dysarthria [Unknown]
  - Accidental overdose [Unknown]

NARRATIVE: CASE EVENT DATE: 20180402
